FAERS Safety Report 9860830 (Version 1)
Quarter: 2014Q1

REPORT INFORMATION
  Report Type: Spontaneous
  Country: MY (occurrence: MY)
  Receive Date: 20140202
  Receipt Date: 20140202
  Transmission Date: 20141002
  Serious: No
  Sender: FDA-Public Use
  Company Number: MY-ALLERGAN-1301798US

PATIENT
  Sex: Female

DRUGS (3)
  1. BOTOX [Suspect]
     Indication: SKIN WRINKLING
     Dosage: 21 UNITS, SINGLE
     Dates: start: 20130122, end: 20130122
  2. BOTOX [Suspect]
     Indication: SKIN WRINKLING
     Dosage: 10 UNITS, SINGLE
  3. BOTOX [Suspect]
     Indication: MUSCLE HYPERTROPHY

REACTIONS (2)
  - Off label use [Unknown]
  - Eyelid ptosis [Unknown]
